FAERS Safety Report 5705472-8 (Version None)
Quarter: 2008Q2

REPORT INFORMATION
  Report Type: 
  Country: None (occurrence: None)
  Receive Date: 20080411
  Receipt Date: 20080407
  Transmission Date: 20081010
  Serious: Yes (Other)
  Sender: FDA-Public Use
  Company Number: 2008008597

PATIENT
  Age: 70 Year
  Sex: Female

DRUGS (1)
  1. LISTERINE WHITENING QUICK DISSOLVING STRIPS (NO ACTIVE INGREDIENT) [Suspect]
     Indication: DENTAL CARE
     Dosage: 2 STRIPS 2 TIMES A DAY, ORAL
     Route: 048
     Dates: start: 20080329, end: 20080402

REACTIONS (2)
  - BURNING SENSATION [None]
  - CHEILITIS [None]
